FAERS Safety Report 5611382-7 (Version None)
Quarter: 2008Q1

REPORT INFORMATION
  Report Type: 
  Country: None (occurrence: None)
  Receive Date: 20080201
  Receipt Date: 20080124
  Transmission Date: 20080703
  Serious: Yes (Other)
  Sender: FDA-Public Use
  Company Number: NO-PFIZER INC-2008007085

PATIENT
  Age: 43 Year
  Sex: Male

DRUGS (4)
  1. LIPITOR [Suspect]
     Indication: ISCHAEMIC HEART DISEASE PROPHYLAXIS
     Route: 048
     Dates: start: 19990531, end: 20020101
  2. SELO-ZOK [Concomitant]
     Indication: ISCHAEMIC HEART DISEASE PROPHYLAXIS
     Route: 048
  3. ALBYL-E [Concomitant]
     Indication: ISCHAEMIC HEART DISEASE PROPHYLAXIS
     Route: 048
  4. GLUCOPHAGE [Concomitant]
     Indication: DIABETES MELLITUS
     Route: 048

REACTIONS (4)
  - DIPLOPIA [None]
  - MUSCULAR WEAKNESS [None]
  - MYALGIA [None]
  - STRABISMUS [None]
